FAERS Safety Report 23358138 (Version 1)
Quarter: 2023Q4

REPORT INFORMATION
  Report Type: Spontaneous
  Country: US (occurrence: None)
  Receive Date: 20231229
  Receipt Date: 20231229
  Transmission Date: 20240109
  Serious: No
  Sender: FDA-Public Use
  Company Number: None

PATIENT
  Sex: Female

DRUGS (1)
  1. AMBRISENTAN [Suspect]
     Active Substance: AMBRISENTAN
     Dosage: FREQUENCY : DAILY;?
     Route: 048

REACTIONS (14)
  - Fatigue [None]
  - Dyspnoea [None]
  - Dizziness [None]
  - Chest pain [None]
  - Depression [None]
  - Insomnia [None]
  - Hypersomnia [None]
  - Decreased appetite [None]
  - Bipolar disorder [None]
  - Back pain [None]
  - Blood cholesterol increased [None]
  - Oedema [None]
  - Urinary tract infection [None]
  - Influenza [None]
